FAERS Safety Report 10570552 (Version 1)
Quarter: 2014Q4

REPORT INFORMATION
  Report Type: Spontaneous
  Country: US (occurrence: None)
  Receive Date: 20141106
  Receipt Date: 20141106
  Transmission Date: 20150529
  Serious: Yes (Disabling)
  Sender: FDA-Public Use
  Company Number: None

PATIENT
  Age: 66 Year
  Sex: Male
  Weight: 65.77 kg

DRUGS (1)
  1. FLOMAX [Suspect]
     Active Substance: TAMSULOSIN HYDROCHLORIDE
     Indication: PROSTATOMEGALY
     Dosage: 1QD, ONCE DAILY, TAKEN BY MOUTH
     Route: 048
     Dates: start: 20001105, end: 20101105

REACTIONS (2)
  - Iris disorder [None]
  - Vision blurred [None]

NARRATIVE: CASE EVENT DATE: 20141010
